FAERS Safety Report 7700540-3 (Version None)
Quarter: 2011Q3

REPORT INFORMATION
  Report Type: 
  Country: None (occurrence: None)
  Receive Date: 20110822
  Receipt Date: 20110816
  Transmission Date: 20111222
  Serious: Yes (Disabling, Other)
  Sender: FDA-Public Use
  Company Number: US-PFIZER INC-2011178717

PATIENT
  Sex: Female

DRUGS (2)
  1. XANAX XR [Suspect]
     Dosage: UNK
  2. XANAX [Suspect]
     Dosage: UNK

REACTIONS (5)
  - IMPAIRED WORK ABILITY [None]
  - AMNESIA [None]
  - ACTIVITIES OF DAILY LIVING IMPAIRED [None]
  - APPARENT DEATH [None]
  - CONVULSION [None]
